FAERS Safety Report 24196186 (Version 1)
Quarter: 2024Q3

REPORT INFORMATION
  Report Type: Spontaneous
  Country: US (occurrence: US)
  Receive Date: 20240809
  Receipt Date: 20240809
  Transmission Date: 20241017
  Serious: Yes (Hospitalization)
  Sender: ELI LILLY AND CO
  Company Number: US-ELI_LILLY_AND_COMPANY-US202407019802

PATIENT
  Age: 67 Year
  Sex: Male

DRUGS (1)
  1. TRULICITY [Suspect]
     Active Substance: DULAGLUTIDE
     Indication: Type 2 diabetes mellitus
     Dosage: 4.5 MG, UNKNOWN
     Route: 058

REACTIONS (5)
  - Neck mass [Recovering/Resolving]
  - Incorrect dose administered [Unknown]
  - Pain in extremity [Unknown]
  - Lethargy [Unknown]
  - Blood glucose decreased [Unknown]
